FAERS Safety Report 8997474 (Version 1)
Quarter: 2013Q1

REPORT INFORMATION
  Report Type: Report from Study
  Country: US (occurrence: US)
  Receive Date: 20130104
  Receipt Date: 20130104
  Transmission Date: 20140127
  Serious: Yes (Congenital Anomaly)
  Sender: FDA-Public Use
  Company Number: US-GENZYME-CAMP-1002640

PATIENT
  Age: 0 Year
  Sex: Male

DRUGS (5)
  1. ALEMTUZUMAB [Suspect]
     Indication: MULTIPLE SCLEROSIS
     Dosage: 12 MG, QD
     Route: 050
     Dates: start: 20110110, end: 20110114
  2. REBIF [Concomitant]
     Indication: MULTIPLE SCLEROSIS
     Dosage: 44 MCG 3X/W, UPTITRATED PER PROTOCOL
     Route: 050
     Dates: start: 20081215, end: 20101213
  3. METHYLPREDNISOLONE [Concomitant]
     Indication: MULTIPLE SCLEROSIS
     Dosage: 1 G, QD
     Route: 050
     Dates: start: 20081215, end: 20081217
  4. METHYLPREDNISOLONE [Concomitant]
     Indication: MULTIPLE SCLEROSIS
     Dosage: 1 G, QD
     Route: 050
     Dates: start: 20091221, end: 20091223
  5. METHYLPREDNISOLONE [Concomitant]
     Indication: MULTIPLE SCLEROSIS
     Dosage: 1 G, QD
     Route: 050
     Dates: start: 20110110, end: 20110112

REACTIONS (1)
  - Talipes [Not Recovered/Not Resolved]
